FAERS Safety Report 5637590-7 (Version None)
Quarter: 2008Q1

REPORT INFORMATION
  Report Type: 
  Country: None (occurrence: None)
  Receive Date: 20080225
  Receipt Date: 20080213
  Transmission Date: 20080703
  Serious: Yes (Other)
  Sender: FDA-Public Use
  Company Number: US-PFIZER INC-2008015946

PATIENT
  Sex: Female
  Weight: 81.6 kg

DRUGS (13)
  1. CHANTIX [Suspect]
     Indication: SMOKING CESSATION THERAPY
     Dates: start: 20080122, end: 20080131
  2. GLIPIZIDE [Concomitant]
  3. GLUCOPHAGE [Concomitant]
  4. AVANDIA [Concomitant]
  5. LORAZEPAM [Concomitant]
  6. LORTAB [Concomitant]
  7. VALIUM [Concomitant]
  8. PREVACID [Concomitant]
  9. CLOMIPRAMINE HCL [Concomitant]
  10. LISINOPRIL [Concomitant]
  11. FISH OIL [Concomitant]
  12. VITAMINS [Concomitant]
  13. VITAMIN B COMPLEX CAP [Concomitant]

REACTIONS (1)
  - DEPRESSION [None]
